FAERS Safety Report 19238690 (Version 3)
Quarter: 2021Q3

REPORT INFORMATION
  Report Type: Spontaneous
  Country: US (occurrence: US)
  Receive Date: 20210510
  Receipt Date: 20210928
  Transmission Date: 20211014
  Serious: No
  Sender: FDA-Public Use
  Company Number: US-PFIZER INC-2021405816

PATIENT
  Age: 59 Year
  Sex: Female

DRUGS (2)
  1. XELJANZ XR [Suspect]
     Active Substance: TOFACITINIB CITRATE
     Dosage: 11 MG, DAILY
     Route: 048
     Dates: start: 2021
  2. XELJANZ XR [Suspect]
     Active Substance: TOFACITINIB CITRATE
     Indication: RHEUMATOID ARTHRITIS
     Dosage: 11 MG, DAILY
     Route: 048
     Dates: start: 20210302, end: 2021

REACTIONS (6)
  - Headache [Recovered/Resolved]
  - Limb injury [Recovering/Resolving]
  - Drug ineffective [Recovered/Resolved]
  - Movement disorder [Recovering/Resolving]
  - Periarthritis [Unknown]
  - Fall [Unknown]

NARRATIVE: CASE EVENT DATE: 2021
